FAERS Safety Report 17575211 (Version 22)
Quarter: 2021Q4

REPORT INFORMATION
  Report Type: Spontaneous
  Country: GB (occurrence: GB)
  Receive Date: 20200324
  Receipt Date: 20211122
  Transmission Date: 20220303
  Serious: Yes (Life-Threatening, Hospitalization, Disabling, Other)
  Sender: FDA-Public Use
  Company Number: GB-MHRA-EYC 00070456

PATIENT
  Age: 27 Year
  Sex: Female
  Weight: 63.5 kg

DRUGS (66)
  1. CODEINE PHOSPHATE [Interacting]
     Active Substance: CODEINE PHOSPHATE
     Indication: Analgesic therapy
     Dosage: UNK
     Route: 048
  2. CODEINE PHOSPHATE [Interacting]
     Active Substance: CODEINE PHOSPHATE
     Indication: Serotonin syndrome
     Dosage: UNK
     Route: 048
     Dates: start: 2002, end: 2002
  3. CODEINE PHOSPHATE [Interacting]
     Active Substance: CODEINE PHOSPHATE
     Dosage: UNK
     Route: 048
     Dates: start: 2008, end: 2008
  4. CODEINE PHOSPHATE [Interacting]
     Active Substance: CODEINE PHOSPHATE
     Dosage: 4 CYCLICAL, ONCE A DAY
     Route: 065
     Dates: start: 20081201, end: 20101210
  5. CODEINE PHOSPHATE [Interacting]
     Active Substance: CODEINE PHOSPHATE
     Dosage: UNK
     Route: 048
     Dates: start: 20110224, end: 20110410
  6. CODEINE PHOSPHATE [Interacting]
     Active Substance: CODEINE PHOSPHATE
     Dosage: 15-30 MG
     Route: 048
     Dates: start: 20110615, end: 20110723
  7. DOMPERIDONE [Interacting]
     Active Substance: DOMPERIDONE
     Indication: Product used for unknown indication
     Dosage: UNK
     Route: 048
  8. DOMPERIDONE [Interacting]
     Active Substance: DOMPERIDONE
     Dosage: UNK
     Route: 048
     Dates: start: 20100923, end: 20101108
  9. MIRTAZAPINE [Interacting]
     Active Substance: MIRTAZAPINE
     Indication: Depression
     Dosage: 30 MILLIGRAM, ONCE A DAY (30 MG IN THE DAY AND 15 MG AT NIGHT)
     Route: 048
     Dates: start: 20100923, end: 20101108
  10. MIRTAZAPINE [Interacting]
     Active Substance: MIRTAZAPINE
     Indication: Psychotic disorder
     Dosage: 30 MILLIGRAM, ONCE A DAY (30 MG IN THE DAY AND 15 MG AT NIGHT)
     Route: 048
     Dates: start: 20101007, end: 20101012
  11. MIRTAZAPINE [Interacting]
     Active Substance: MIRTAZAPINE
     Dosage: 15 MILLIGRAM, ONCE A DAY
     Route: 048
     Dates: start: 20101007, end: 20101012
  12. MIRTAZAPINE [Interacting]
     Active Substance: MIRTAZAPINE
     Dosage: 15 MILLIGRAM, ONCE A DAY
     Route: 065
     Dates: start: 20110224, end: 20110506
  13. MIRTAZAPINE [Interacting]
     Active Substance: MIRTAZAPINE
     Dosage: 30 MILLIGRAM, ONCE A DAY
     Route: 065
     Dates: start: 20110224, end: 20110506
  14. PAROXETINE [Interacting]
     Active Substance: PAROXETINE
     Indication: Depression
     Dosage: UNK
     Route: 048
     Dates: start: 1996
  15. PAROXETINE [Interacting]
     Active Substance: PAROXETINE
     Indication: Post-traumatic stress disorder
     Dosage: 20 MILLIGRAM, 3 TIMES A DAY (60 MG ONCE A DAY)
     Route: 048
     Dates: start: 1997, end: 201105
  16. PAROXETINE [Interacting]
     Active Substance: PAROXETINE
     Dosage: 60 MILLIGRAM
     Route: 048
     Dates: start: 1997, end: 201105
  17. PAROXETINE [Interacting]
     Active Substance: PAROXETINE
     Dosage: 60 MILLIGRAM, ONCE A DAY
     Route: 048
     Dates: start: 19990801, end: 201105
  18. PAROXETINE [Interacting]
     Active Substance: PAROXETINE
     Dosage: 40 MILLIGRAM, ONCE A DAY
     Route: 048
     Dates: start: 19990801, end: 20110706
  19. PAROXETINE [Interacting]
     Active Substance: PAROXETINE
     Dosage: UNK
     Route: 048
     Dates: end: 20101210
  20. PAROXETINE [Interacting]
     Active Substance: PAROXETINE
     Dosage: UNK
     Route: 048
     Dates: start: 201012
  21. PAROXETINE [Interacting]
     Active Substance: PAROXETINE
     Dosage: 40 MILLIGRAM, ONCE A DAY
     Route: 048
     Dates: start: 19990801, end: 20110706
  22. PAROXETINE [Interacting]
     Active Substance: PAROXETINE
     Dosage: 20 MILLIGRAM
     Route: 048
     Dates: end: 20110706
  23. QUETIAPINE [Interacting]
     Active Substance: QUETIAPINE
     Indication: Psychotic disorder
     Dosage: UNK
     Route: 048
     Dates: start: 19990801, end: 20110706
  24. QUETIAPINE [Interacting]
     Active Substance: QUETIAPINE
     Dosage: 300 MILLIGRAM
     Route: 048
     Dates: start: 20110224, end: 20110506
  25. TRAMADOL [Interacting]
     Active Substance: TRAMADOL
     Indication: Neck pain
     Dosage: 8 MILLIGRAM,(8 MG, QD ) ONCE A DAY
     Route: 048
     Dates: start: 20110725
  26. TRAMADOL [Interacting]
     Active Substance: TRAMADOL
     Indication: Back pain
     Dosage: 8 MILLIGRAM
     Route: 048
  27. TRAMADOL [Interacting]
     Active Substance: TRAMADOL
     Indication: Oculogyric crisis
     Dosage: 5 MILLIGRAM, ONCE A DAY
     Route: 044
     Dates: start: 1995, end: 1996
  28. TRAMADOL [Interacting]
     Active Substance: TRAMADOL
     Indication: Analgesic therapy
     Dosage: 5 MILLIGRAM
     Route: 044
     Dates: start: 1995, end: 1996
  29. TRAMADOL [Interacting]
     Active Substance: TRAMADOL
     Dosage: UNK
     Route: 065
     Dates: start: 2008, end: 2009
  30. TRAMADOL [Interacting]
     Active Substance: TRAMADOL
     Dosage: 50-100MG
     Route: 048
     Dates: start: 20080722
  31. TRAMADOL [Interacting]
     Active Substance: TRAMADOL
     Dosage: DISCONTINUED AFTER 4 OR 5 DAYS
     Route: 048
     Dates: start: 20081201, end: 20101210
  32. TRAMADOL [Interacting]
     Active Substance: TRAMADOL
     Dosage: 1 DOSAGE FORM
     Route: 065
     Dates: start: 20110725
  33. AMITRIPTYLINE [Suspect]
     Active Substance: AMITRIPTYLINE
     Indication: Muscle spasms
     Dosage: 20 MILLIGRAM, ONCE A DAY
     Route: 065
  34. AMITRIPTYLINE [Suspect]
     Active Substance: AMITRIPTYLINE
     Indication: Neuralgia
     Dosage: 25 MILLIGRAM, ONCE A DAY
     Route: 065
     Dates: start: 20110810
  35. AMITRIPTYLINE [Suspect]
     Active Substance: AMITRIPTYLINE
     Indication: Neuralgia
  36. AMITRIPTYLINE [Suspect]
     Active Substance: AMITRIPTYLINE
     Indication: Serotonin syndrome
  37. CLONAZEPAM [Suspect]
     Active Substance: CLONAZEPAM
     Indication: Sedation
     Dosage: UNK
     Route: 048
     Dates: start: 20110224, end: 20110410
  38. DIAZEPAM [Interacting]
     Active Substance: DIAZEPAM
     Indication: Serotonin syndrome
     Dosage: 20 MILLIGRAM (20 MG, QID ), ONCE A DAY
     Route: 065
  39. DIAZEPAM [Interacting]
     Active Substance: DIAZEPAM
     Indication: Muscle spasms
     Dosage: 20 MILLIGRAM, ONCE A DAY (5 MG QDS AND NOW ON 2-2-4 MG)
     Route: 048
     Dates: start: 20110725
  40. DIAZEPAM [Interacting]
     Active Substance: DIAZEPAM
     Dosage: 8 MILLIGRAM, ONCE A DAY (5 MG QDS AND NOW ON 2-2-4 MG)
     Route: 048
     Dates: start: 20110725
  41. DIAZEPAM [Interacting]
     Active Substance: DIAZEPAM
     Dosage: 5 MILLIGRAM (5 MG, QID ), ONCE A DAY
     Route: 048
     Dates: start: 20110725
  42. DIAZEPAM [Interacting]
     Active Substance: DIAZEPAM
     Dosage: 5 MG QDS AND NOW ON 2-2-4 MG
     Route: 048
     Dates: start: 20110725
  43. LORAZEPAM [Interacting]
     Active Substance: LORAZEPAM
     Indication: Sedation
     Dosage: 1 MILLIGRAM
     Route: 048
     Dates: start: 20110224
  44. LORAZEPAM [Interacting]
     Active Substance: LORAZEPAM
     Dosage: 4 MILLIGRAM, (4 MG, QD (1 MG QID) ) ONCE A DAY
     Route: 048
     Dates: start: 20110202, end: 20110410
  45. LORAZEPAM [Interacting]
     Active Substance: LORAZEPAM
     Dosage: 16 MILLIGRAM, ONCE A DAY
     Route: 048
     Dates: start: 20110224, end: 20110410
  46. LORAZEPAM [Interacting]
     Active Substance: LORAZEPAM
     Dosage: 4 MILLIGRAM
     Route: 048
     Dates: start: 20110224, end: 20110410
  47. LORAZEPAM [Interacting]
     Active Substance: LORAZEPAM
     Dosage: 4 MILLIGRAM, FOUR TIMES/DAY
     Route: 048
     Dates: start: 20110523, end: 20110627
  48. LORAZEPAM [Interacting]
     Active Substance: LORAZEPAM
     Dosage: 4 MILLIGRAM, ONCE A DAY
     Route: 048
     Dates: start: 20110523, end: 20110627
  49. LORAZEPAM [Interacting]
     Active Substance: LORAZEPAM
     Dosage: 1 MILLIGRAM, ONCE A DAY
     Route: 048
     Dates: start: 20110523, end: 20110627
  50. LORAZEPAM [Interacting]
     Active Substance: LORAZEPAM
     Dosage: 1 MILLIGRAM
     Route: 048
     Dates: start: 20110725
  51. OMEPRAZOLE [Suspect]
     Active Substance: OMEPRAZOLE
     Indication: Dyspepsia
     Dosage: 20 MILLIGRAM, ONCE A DAY(20 MG, QD)
     Route: 065
     Dates: start: 20110525
  52. PHOSPHORUS [Suspect]
     Active Substance: PHOSPHORUS
     Indication: Product used for unknown indication
     Dosage: UNK
     Route: 065
  53. PROCYCLIDINE [Interacting]
     Active Substance: PROCYCLIDINE
     Indication: Extrapyramidal disorder
     Dosage: UNK
     Route: 065
  54. PROCYCLIDINE [Interacting]
     Active Substance: PROCYCLIDINE
     Indication: Oculogyric crisis
     Dosage: 5 MILLIGRAM, ONCE A DAY
     Route: 048
     Dates: start: 1995, end: 1995
  55. PROCYCLIDINE [Interacting]
     Active Substance: PROCYCLIDINE
     Dosage: 5 MILLIGRAM, ONCE A DAY
     Route: 048
     Dates: start: 1995, end: 1996
  56. PROCYCLIDINE [Interacting]
     Active Substance: PROCYCLIDINE
     Dosage: 20 MILLIGRAM
     Route: 048
     Dates: start: 20110324, end: 20110506
  57. PROCYCLIDINE [Interacting]
     Active Substance: PROCYCLIDINE
     Dosage: 20 MG, QD, IN 1ST TRIMESTER
     Route: 065
     Dates: start: 20110415
  58. PROCYCLIDINE [Interacting]
     Active Substance: PROCYCLIDINE
     Dosage: 15 MILLIGRAM, ONCE A DAY
     Route: 048
     Dates: start: 20110503, end: 20110510
  59. PROCYCLIDINE [Interacting]
     Active Substance: PROCYCLIDINE
     Dosage: 15 MILLIGRAM, 3 TIMES A DAY (15 MG, QD)
     Route: 048
     Dates: start: 20110503, end: 20110510
  60. PAROXETINE HYDROCHLORIDE [Interacting]
     Active Substance: PAROXETINE HYDROCHLORIDE
     Indication: Depression
     Dosage: UNK
     Route: 048
  61. PAROXETINE HYDROCHLORIDE [Interacting]
     Active Substance: PAROXETINE HYDROCHLORIDE
     Dosage: 20 MILLIGRAM, 3 TIMES A DAY (20 MILLIGRAM, TID)
     Route: 048
     Dates: start: 1997
  62. PAROXETINE HYDROCHLORIDE [Interacting]
     Active Substance: PAROXETINE HYDROCHLORIDE
     Dosage: 20 MILLIGRAM, 3 TIMES A DAY(20 MG, TID)
     Route: 048
     Dates: start: 19990801, end: 201105
  63. PAROXETINE HYDROCHLORIDE [Interacting]
     Active Substance: PAROXETINE HYDROCHLORIDE
     Dosage: UNK
     Route: 048
     Dates: start: 200812, end: 20101210
  64. PAROXETINE HYDROCHLORIDE [Interacting]
     Active Substance: PAROXETINE HYDROCHLORIDE
     Dosage: UNK
     Route: 048
     Dates: start: 201012
  65. PAROXETINE HYDROCHLORIDE [Interacting]
     Active Substance: PAROXETINE HYDROCHLORIDE
     Dosage: 40 MILLIGRAM, ONCE A DAY
     Route: 048
     Dates: start: 201105, end: 20110706
  66. PAROXETINE HYDROCHLORIDE [Interacting]
     Active Substance: PAROXETINE HYDROCHLORIDE
     Dosage: 40 MILLIGRAM (40 MG, QD ), ONCE A DAY
     Route: 048
     Dates: start: 201105, end: 20110706

REACTIONS (88)
  - Swollen tongue [Unknown]
  - Arthralgia [Unknown]
  - Tachycardia [Unknown]
  - Menstrual disorder [Unknown]
  - Depression [Unknown]
  - Mood swings [Unknown]
  - Illness [Unknown]
  - Mania [Unknown]
  - Tremor [Not Recovered/Not Resolved]
  - Feeling of body temperature change [Unknown]
  - Restlessness [Unknown]
  - Psychotic disorder [Recovered/Resolved]
  - Headache [Unknown]
  - Drooling [Unknown]
  - Neuroleptic malignant syndrome [Unknown]
  - Urinary retention [Unknown]
  - Disorientation [Not Recovered/Not Resolved]
  - Pallor [Unknown]
  - Agitation [Unknown]
  - Paralysis [Unknown]
  - Diarrhoea [Unknown]
  - Fatigue [Not Recovered/Not Resolved]
  - Incontinence [Not Recovered/Not Resolved]
  - Vomiting [Unknown]
  - Swelling face [Unknown]
  - Muscle rigidity [Unknown]
  - Vision blurred [Unknown]
  - Hypoaesthesia [Not Recovered/Not Resolved]
  - Cogwheel rigidity [Unknown]
  - Anxiety [Unknown]
  - Emotional disorder [Unknown]
  - Contusion [Not Recovered/Not Resolved]
  - Hyperhidrosis [Unknown]
  - Dissociation [Not Recovered/Not Resolved]
  - Speech disorder [Not Recovered/Not Resolved]
  - Hallucinations, mixed [Unknown]
  - Visual impairment [Unknown]
  - Delirium [Unknown]
  - Skin discolouration [Not Recovered/Not Resolved]
  - Tinnitus [Unknown]
  - Serotonin syndrome [Not Recovered/Not Resolved]
  - Feeling jittery [Unknown]
  - Parosmia [Unknown]
  - Nightmare [Unknown]
  - Gastric pH decreased [Unknown]
  - Dyskinesia [Unknown]
  - Dystonia [Unknown]
  - H1N1 influenza [Unknown]
  - Musculoskeletal stiffness [Unknown]
  - Eye pain [Unknown]
  - Dizziness [Unknown]
  - Balance disorder [Unknown]
  - Heart rate increased [Unknown]
  - Blood sodium decreased [Unknown]
  - Cyanosis [Unknown]
  - Asthenia [Unknown]
  - Hypoaesthesia oral [Unknown]
  - Gait disturbance [Unknown]
  - Seizure [Unknown]
  - Schizophrenia [Unknown]
  - Dyspnoea [Unknown]
  - Sleep disorder [Unknown]
  - Aphasia [Not Recovered/Not Resolved]
  - Pruritus [Unknown]
  - Decreased appetite [Unknown]
  - Pyrexia [Unknown]
  - Suicidal ideation [Not Recovered/Not Resolved]
  - Derealisation [Not Recovered/Not Resolved]
  - Sensory loss [Unknown]
  - Paraesthesia [Unknown]
  - Disturbance in attention [Unknown]
  - Muscle disorder [Unknown]
  - Feeling of despair [Unknown]
  - Mydriasis [Unknown]
  - Muscle spasms [Not Recovered/Not Resolved]
  - Confusional state [Not Recovered/Not Resolved]
  - Restless legs syndrome [Not Recovered/Not Resolved]
  - Depersonalisation/derealisation disorder [Not Recovered/Not Resolved]
  - Somnolence [Not Recovered/Not Resolved]
  - Drug interaction [Unknown]
  - Drug withdrawal syndrome [Unknown]
  - Therapeutic product ineffective [Unknown]
  - Toxicity to various agents [Unknown]
  - Exposure during pregnancy [Unknown]
  - Premature labour [Unknown]
  - Limb injury [Unknown]
  - Drug ineffective [Unknown]
  - Off label use [Unknown]

NARRATIVE: CASE EVENT DATE: 20030101
